FAERS Safety Report 8161597-1 (Version None)
Quarter: 2012Q1

REPORT INFORMATION
  Report Type: 
  Country: None (occurrence: None)
  Receive Date: 20120224
  Receipt Date: 20120215
  Transmission Date: 20120608
  Serious: Yes (Other)
  Sender: FDA-Public Use
  Company Number: US-BAYER-2011-088204

PATIENT
  Age: 26 Year
  Sex: Female
  Weight: 88 kg

DRUGS (8)
  1. ULTRACET [Concomitant]
     Dosage: 1 EVERY 6 HOURS PRN
  2. ZOLOFT [Concomitant]
     Dosage: 50 MG, QD
  3. PREDNISONE [Concomitant]
     Dosage: 4 MG, UNK
  4. PROTONIX [Concomitant]
     Dosage: 40 MG, QD
  5. YAZ [Suspect]
     Indication: ACNE
  6. YAZ [Suspect]
     Indication: MENSTRUATION IRREGULAR
  7. LIBRAX [Concomitant]
     Dosage: 1 EVERY 8 HOURS PRN
  8. YAZ [Suspect]
     Indication: CONTRACEPTION
     Dosage: UNK
     Dates: start: 20081201, end: 20090901

REACTIONS (4)
  - HIGH RISK PREGNANCY [None]
  - PULMONARY EMBOLISM [None]
  - COMPLICATION OF PREGNANCY [None]
  - PAIN [None]
